FAERS Safety Report 6902768-9 (Version None)
Quarter: 2010Q3

REPORT INFORMATION
  Report Type: 
  Country: None (occurrence: None)
  Receive Date: 20100803
  Receipt Date: 20080714
  Transmission Date: 20110219
  Serious: No
  Sender: FDA-Public Use
  Company Number: US-PFIZER INC-2008049808

PATIENT
  Sex: Male
  Weight: 88.5 kg

DRUGS (5)
  1. LYRICA [Suspect]
     Indication: SCIATICA
     Route: 048
     Dates: start: 20060101, end: 20080708
  2. LYRICA [Suspect]
     Indication: HERPES ZOSTER
  3. CRESTOR [Concomitant]
  4. ZETIA [Concomitant]
  5. CELEBREX [Concomitant]

REACTIONS (5)
  - BACK PAIN [None]
  - DIZZINESS [None]
  - FATIGUE [None]
  - HERPES ZOSTER [None]
  - WEIGHT INCREASED [None]
